FAERS Safety Report 4773413-6 (Version None)
Quarter: 2005Q3

REPORT INFORMATION
  Report Type: 
  Country: None (occurrence: None)
  Receive Date: 20050920
  Receipt Date: 20050908
  Transmission Date: 20060218
  Serious: Yes (Hospitalization)
  Sender: FDA-Public Use
  Company Number: US-JNJFOC-20040505053

PATIENT
  Sex: Female

DRUGS (67)
  1. INFLIXIMAB [Suspect]
     Route: 042
  2. INFLIXIMAB [Suspect]
     Indication: RHEUMATOID ARTHRITIS
     Route: 042
  3. ACTONEL [Concomitant]
  4. ULTRACET [Concomitant]
  5. ULTRACET [Concomitant]
     Dosage: 37.5-325 MG TABLET AS NEEDED
  6. BEXTRA [Concomitant]
  7. NEURONTIN [Concomitant]
  8. METHOTREXATE [Concomitant]
  9. FOLIC ACID [Concomitant]
  10. CALCIUM CARBONATE/VITAMIN D [Concomitant]
     Dosage: 500-200 MG-IU TABLETS, 2 DAILY
  11. PLAQUENIL [Concomitant]
  12. ATENOLOL [Concomitant]
  13. ASPIRIN [Concomitant]
  14. VITAMIN E [Concomitant]
  15. MULTI-VITAMIN [Concomitant]
  16. MULTI-VITAMIN [Concomitant]
  17. MULTI-VITAMIN [Concomitant]
  18. MULTI-VITAMIN [Concomitant]
  19. MULTI-VITAMIN [Concomitant]
  20. MULTI-VITAMIN [Concomitant]
  21. MULTI-VITAMIN [Concomitant]
  22. MULTI-VITAMIN [Concomitant]
  23. DIFLUCAN [Concomitant]
  24. TYLENOL [Concomitant]
  25. TYLENOL [Concomitant]
  26. TYLENOL [Concomitant]
  27. TYLENOL [Concomitant]
  28. TYLENOL [Concomitant]
  29. TYLENOL [Concomitant]
  30. TYLENOL [Concomitant]
  31. TYLENOL [Concomitant]
  32. TYLENOL [Concomitant]
  33. TYLENOL [Concomitant]
  34. TYLENOL [Concomitant]
  35. MILK OF MAGNESIA TAB [Concomitant]
  36. MILK OF MAGNESIA TAB [Concomitant]
  37. DESYREL [Concomitant]
  38. DESYREL [Concomitant]
  39. FORTEO [Concomitant]
     Dosage: 750 MCG/3 ML SOLN
  40. PROTONIX [Concomitant]
     Dosage: EC
  41. ALDOMET [Concomitant]
  42. COMBIVENT [Concomitant]
  43. COMBIVENT [Concomitant]
     Dosage: 103-18 MCG ACT AEROSOL
  44. PHENERGAN [Concomitant]
     Dosage: IV
  45. PHENERGAN [Concomitant]
     Dosage: TABLETS
  46. ULTRAM [Concomitant]
     Route: 048
  47. ULTRAM [Concomitant]
     Route: 048
  48. ULTRAM [Concomitant]
     Route: 048
  49. ULTRAM [Concomitant]
     Route: 048
  50. ULTRAM [Concomitant]
     Route: 048
  51. ULTRAM [Concomitant]
     Dosage: EVERY SIX HOURS PRN
     Route: 048
  52. DURAGESIC-100 [Concomitant]
  53. DURAGESIC-100 [Concomitant]
  54. DURAGESIC-100 [Concomitant]
  55. DURAGESIC-100 [Concomitant]
     Dosage: 100 MCG/HR PATCH 72
  56. MIRALAX [Concomitant]
     Dosage: ONCE DAILY
  57. ZOFRAN [Concomitant]
     Dosage: 6 DAILY AS NEEDED
  58. MORPHINE [Concomitant]
     Dosage: 1-2 MG Q4H
  59. HYDROCODONE BITARTRATE + ACETAMINOPHEN [Concomitant]
     Dosage: 5-500 MG
  60. HYDROCODONE BITARTRATE + ACETAMINOPHEN [Concomitant]
     Dosage: 10-500 MG
  61. PERCOCET [Concomitant]
  62. PERCOCET [Concomitant]
  63. MACROBID [Concomitant]
  64. POTASSIUM ACETATE [Concomitant]
     Route: 042
  65. NYSTATIN [Concomitant]
     Dosage: 100000 U/ML
     Route: 042
  66. CEPACOL [Concomitant]
  67. OXYCONTIN [Concomitant]

REACTIONS (7)
  - LOSS OF CONSCIOUSNESS [None]
  - NAUSEA [None]
  - OESOPHAGEAL CANDIDIASIS [None]
  - OSTEOPOROSIS [None]
  - OSTEOPOROTIC FRACTURE [None]
  - SPINAL COMPRESSION FRACTURE [None]
  - VOMITING [None]
